FAERS Safety Report 19890828 (Version 3)
Quarter: 2024Q3

REPORT INFORMATION
  Report Type: Report from Study
  Country: BR (occurrence: BR)
  Receive Date: 20210927
  Receipt Date: 20240807
  Transmission Date: 20241017
  Serious: Yes (Other)
  Sender: TAKEDA
  Company Number: BR-TAKEDA-2021TUS059415

PATIENT
  Age: 42 Year
  Sex: Female

DRUGS (1)
  1. VEDOLIZUMAB [Suspect]
     Active Substance: VEDOLIZUMAB
     Indication: Crohn^s disease
     Dosage: 300 MILLIGRAM
     Route: 042
     Dates: start: 20200909

REACTIONS (12)
  - Rectal haemorrhage [Unknown]
  - Gastric ulcer [Unknown]
  - Diarrhoea [Unknown]
  - Duodenitis [Unknown]
  - Frequent bowel movements [Unknown]
  - Therapeutic reaction time decreased [Unknown]
  - Chronic gastritis [Unknown]
  - Gastric polyps [Unknown]
  - Proctitis [Unknown]
  - Enteritis [Unknown]
  - Contrast media reaction [Unknown]
  - Abdominal pain [Unknown]

NARRATIVE: CASE EVENT DATE: 20230925
